FAERS Safety Report 11395136 (Version 1)
Quarter: 2015Q3

REPORT INFORMATION
  Report Type: Spontaneous
  Country: US (occurrence: US)
  Receive Date: 20150819
  Receipt Date: 20150819
  Transmission Date: 20151125
  Serious: Yes (Hospitalization, Other)
  Sender: FDA-Public Use
  Company Number: US-RECKITT BENCKISER PHARMACEUTICAL, INC-RB-082104-2015

PATIENT
  Age: 64 Year
  Sex: Female

DRUGS (4)
  1. SUBOXONE [Suspect]
     Active Substance: BUPRENORPHINE HYDROCHLORIDE\NALOXONE HYDROCHLORIDE
     Dosage: 16MG, DAILY
     Route: 060
     Dates: end: 2015
  2. TRAMADOL. [Suspect]
     Active Substance: TRAMADOL
     Indication: DRUG WITHDRAWAL SYNDROME
     Dosage: UNK
     Route: 065
     Dates: start: 2015
  3. NICOTINE. [Concomitant]
     Active Substance: NICOTINE
     Indication: NICOTINE DEPENDENCE
     Dosage: 1 UNIT, DAILY
     Route: 055
     Dates: end: 201503
  4. SUBOXONE [Suspect]
     Active Substance: BUPRENORPHINE HYDROCHLORIDE\NALOXONE HYDROCHLORIDE
     Indication: DRUG DEPENDENCE
     Dosage: 24MG, DAILY
     Route: 060
     Dates: start: 201411

REACTIONS (15)
  - Abdominal discomfort [Not Recovered/Not Resolved]
  - Decreased appetite [Not Recovered/Not Resolved]
  - Muscle spasms [Not Recovered/Not Resolved]
  - Insomnia [Not Recovered/Not Resolved]
  - Chronic obstructive pulmonary disease [Not Recovered/Not Resolved]
  - Diarrhoea [Not Recovered/Not Resolved]
  - Drug withdrawal syndrome [Not Recovered/Not Resolved]
  - Pneumonia [Recovered/Resolved]
  - Dyspnoea [Recovering/Resolving]
  - Intentional underdose [Recovered/Resolved]
  - Malaise [Not Recovered/Not Resolved]
  - Dizziness [Not Recovered/Not Resolved]
  - Product preparation error [Recovered/Resolved]
  - Therapy cessation [Recovered/Resolved]
  - Drug abuse [Unknown]

NARRATIVE: CASE EVENT DATE: 2015
